FAERS Safety Report 4506861-X (Version None)
Quarter: 2004Q4

REPORT INFORMATION
  Report Type: 
  Country: None (occurrence: None)
  Receive Date: 20041122
  Receipt Date: 20041112
  Transmission Date: 20050328
  Serious: Yes (Hospitalization, Other)
  Sender: FDA-Public Use
  Company Number: PHBS2004AR15369

PATIENT
  Age: 68 Year
  Sex: Male

DRUGS (1)
  1. DIOVAN [Suspect]
     Indication: HYPERTENSION
     Dosage: 80 MG, QD
     Route: 048
     Dates: start: 20040901

REACTIONS (5)
  - BACK PAIN [None]
  - HAEMATURIA [None]
  - RENAL CELL CARCINOMA STAGE UNSPECIFIED [None]
  - RENAL NEOPLASM [None]
  - STOMACH DISCOMFORT [None]
